FAERS Safety Report 13400521 (Version 2)
Quarter: 2017Q2

REPORT INFORMATION
  Report Type: Spontaneous
  Country: GB (occurrence: GB)
  Receive Date: 20170404
  Receipt Date: 20170404
  Transmission Date: 20170830
  Serious: Yes (Disabling)
  Sender: FDA-Public Use
  Company Number: GB-CIPLA LTD.-2017GB04797

PATIENT

DRUGS (3)
  1. DUORESP SPIROMAX [Concomitant]
     Active Substance: BUDESONIDE\FORMOTEROL
     Dosage: UNK, ONE OR TWO PUFFS TWICE A DAY. 160MICROGRAMS/DOSE/4.5MICROGRAMS/DOSE, DRY POWDER
     Route: 055
  2. SERTRALINE [Suspect]
     Active Substance: SERTRALINE HYDROCHLORIDE
     Dosage: 50 MG, QD
     Route: 048
  3. FEXOFENADINE [Concomitant]
     Active Substance: FEXOFENADINE\FEXOFENADINE HYDROCHLORIDE
     Dosage: 120 MG, QD
     Route: 048

REACTIONS (1)
  - Psychogenic seizure [Unknown]
